FAERS Safety Report 14967318 (Version 1)
Quarter: 2018Q3

REPORT INFORMATION
  Report Type: Spontaneous
  Country: CN (occurrence: CN)
  Receive Date: 20180604
  Receipt Date: 20180604
  Transmission Date: 20181010
  Serious: Yes (Death, Other)
  Sender: FDA-Public Use
  Company Number: CN-CHEPLA-C20180365_01

PATIENT
  Age: 24 Year
  Sex: Male

DRUGS (11)
  1. HOMOHARRINGTONINE [Suspect]
     Active Substance: OMACETAXINE MEPESUCCINATE
     Indication: ACUTE PROMYELOCYTIC LEUKAEMIA
     Dosage: 1 MG/M^2 PER DAY ON DAYS 1 TO 10
     Route: 065
  2. DAUNORUBICIN [Suspect]
     Active Substance: DAUNORUBICIN
     Indication: ACUTE PROMYELOCYTIC LEUKAEMIA
     Dosage: 40 MG/M^2 PER DAY ON DAYS 1 TO 3
     Route: 065
  3. CYTOSINE ARABINOSIDE [Suspect]
     Active Substance: CYTARABINE
     Indication: ACUTE PROMYELOCYTIC LEUKAEMIA
     Dosage: 2.0 G/M^2 PER DAY ON DAYS 1 TO 3
     Route: 065
  4. GRANULOCYTE COLONY?STIMULATING FACTOR [Suspect]
     Active Substance: GRANULOCYTE COLONY-STIMULATING FACTOR NOS
     Indication: ACUTE PROMYELOCYTIC LEUKAEMIA
     Dosage: 150 ?G DAILY
     Route: 065
  5. CYTOSINE ARABINOSIDE [Suspect]
     Active Substance: CYTARABINE
     Indication: ACUTE PROMYELOCYTIC LEUKAEMIA
     Dosage: 100 MG/M^2 PER DAY ON DAYS 1 TO 7
     Route: 065
  6. ALL?TRANS?RETINOIC ACID (ATRA) [Suspect]
     Active Substance: TRETINOIN
     Indication: ACUTE PROMYELOCYTIC LEUKAEMIA
     Dosage: 25 MG/M^2 PER DAY
     Route: 065
  7. CYTOSINE ARABINOSIDE [Suspect]
     Active Substance: CYTARABINE
     Indication: ACUTE PROMYELOCYTIC LEUKAEMIA
     Dosage: 200 MG/M^2 PER DAY ON DAYS 1 TO 7
     Route: 065
  8. CYTOSINE ARABINOSIDE [Suspect]
     Active Substance: CYTARABINE
     Indication: ACUTE PROMYELOCYTIC LEUKAEMIA
     Dosage: 10 MG/M^2 SUBCUTANEOUS INJECTION ONCE EVERY 12 HOURS ON DAYS 1 TO 14
     Route: 058
  9. ARSENIC TRIOXIDE [Suspect]
     Active Substance: ARSENIC TRIOXIDE
     Indication: ACUTE PROMYELOCYTIC LEUKAEMIA
     Dosage: 10 MG PER DAY
     Route: 065
  10. FLUDARABINE [Suspect]
     Active Substance: FLUDARABINE PHOSPHATE
     Indication: ACUTE PROMYELOCYTIC LEUKAEMIA
     Dosage: 30 MG/M^2 PER DAY ON DAYS 1 TO 3
     Route: 065
  11. MITOXANTRONE [Suspect]
     Active Substance: MITOXANTRONE HYDROCHLORIDE
     Indication: ACUTE PROMYELOCYTIC LEUKAEMIA
     Dosage: 8 MG/M^2 PER DAY ON DAYS 1 TO 3
     Route: 065

REACTIONS (3)
  - Drug ineffective [Unknown]
  - Leukaemia recurrent [Unknown]
  - Cerebral haemorrhage [Fatal]
